FAERS Safety Report 13373836 (Version 3)
Quarter: 2017Q2

REPORT INFORMATION
  Report Type: Spontaneous
  Country: US (occurrence: US)
  Receive Date: 20170327
  Receipt Date: 20170602
  Transmission Date: 20170830
  Serious: No
  Sender: FDA-Public Use
  Company Number: US-PFIZER INC-2017129700

PATIENT
  Age: 73 Year
  Sex: Female

DRUGS (6)
  1. PREMARIN [Suspect]
     Active Substance: ESTROGENS, CONJUGATED
     Dosage: 0.3 MG, 1X/DAY
  2. SYNTHROID [Concomitant]
     Active Substance: LEVOTHYROXINE SODIUM
     Dosage: UNK
  3. PREMARIN [Suspect]
     Active Substance: ESTROGENS, CONJUGATED
     Indication: MENOPAUSAL SYMPTOMS
     Dosage: 125 (UOM NOT REPORTED)
     Dates: start: 1982
  4. XANAX [Concomitant]
     Active Substance: ALPRAZOLAM
     Dosage: UNK
  5. PREMARIN [Suspect]
     Active Substance: ESTROGENS, CONJUGATED
     Dosage: 0.625 MG, 1X/DAY
     Dates: start: 1982
  6. PREMARIN [Suspect]
     Active Substance: ESTROGENS, CONJUGATED
     Dosage: 0.3 MG, ALTERNATE DAY

REACTIONS (4)
  - Nervousness [Unknown]
  - Irritability [Unknown]
  - Tremor [Unknown]
  - Impatience [Unknown]
